FAERS Safety Report 6335646-7 (Version None)
Quarter: 2009Q3

REPORT INFORMATION
  Report Type: 
  Country: None (occurrence: None)
  Receive Date: 20090826
  Receipt Date: 20090813
  Transmission Date: 20100115
  Serious: Yes (Life-Threatening, Hospitalization, Other)
  Sender: FDA-Public Use
  Company Number: 2009AP003299

PATIENT
  Age: 45 Year
  Sex: Female

DRUGS (7)
  1. CITALOPRAM HYDROBROMIDE [Suspect]
     Indication: DEPRESSION
     Dosage: 20 MG;PO ; 40 MG;PO
     Route: 048
     Dates: start: 20090501, end: 20090623
  2. CITALOPRAM HYDROBROMIDE [Suspect]
     Indication: DEPRESSION
     Dosage: 20 MG;PO ; 40 MG;PO
     Route: 048
     Dates: start: 20090624, end: 20090707
  3. CETIRIZINE HCL [Concomitant]
  4. CODEINE PHOSPHATE (CODEINE PHOSPHATE) [Concomitant]
  5. PARACETAMOL (PARACETAMOL) [Concomitant]
  6. FLUOXETINE HCL [Concomitant]
  7. ZOPICLONE (ZOPICLONE) [Concomitant]

REACTIONS (6)
  - ABDOMINAL PAIN UPPER [None]
  - HALLUCINATION [None]
  - HEPATITIS ACUTE [None]
  - HEPATORENAL FAILURE [None]
  - HEPATORENAL SYNDROME [None]
  - NAUSEA [None]
